FAERS Safety Report 19263186 (Version 1)
Quarter: 2021Q2

REPORT INFORMATION
  Report Type: Spontaneous
  Country: DE (occurrence: DE)
  Receive Date: 20210517
  Receipt Date: 20210517
  Transmission Date: 20210717
  Serious: No
  Sender: FDA-Public Use
  Company Number: DE-ALKEM LABORATORIES LIMITED-DE-ALKEM-2021-01429

PATIENT
  Age: 55 Year
  Sex: Male
  Weight: 73 kg

DRUGS (24)
  1. BISOPROLOL [Concomitant]
     Active Substance: BISOPROLOL
     Indication: HYPERTENSION
     Dosage: 2.5 MILLIGRAM (EVERY 1 DAY)
     Route: 065
  2. CPS PULVER [Concomitant]
     Indication: BLOOD POTASSIUM ABNORMAL
     Dosage: 14.99 GRAM (EVERY 12 HOURS)
     Route: 065
  3. FLUVASTATIN [Concomitant]
     Active Substance: FLUVASTATIN SODIUM
     Indication: BLOOD CHOLESTEROL INCREASED
     Dosage: 80 MILLIGRAM (EVERY 1 DAY)
     Route: 065
  4. FOSRENOL [Concomitant]
     Active Substance: LANTHANUM CARBONATE
     Indication: BLOOD PHOSPHORUS INCREASED
     Dosage: 3000 MILLIGRAM (EVERY 1 DAY)
     Route: 065
  5. GLUCOSAMINE [Concomitant]
     Active Substance: GLUCOSAMINE
     Indication: ARTHROPATHY
     Dosage: 1400 MILLIGRAM (EVERY 1 DAY)
     Route: 065
  6. MOXONIDINE [Concomitant]
     Active Substance: MOXONIDINE
     Indication: HYPERTENSION
     Dosage: 0.3 MILLIGRAM (EVERY 12 HOURS)
     Route: 065
  7. NEUREXAN [Concomitant]
     Active Substance: HOMEOPATHICS
     Indication: RESTLESSNESS
     Dosage: 2 DOSAGE FORM (EVERY 1 DAY)
     Route: 065
  8. PREGABALIN. [Suspect]
     Active Substance: PREGABALIN
     Indication: ANXIETY DISORDER
     Dosage: 75 MILLIGRAM, QD (EVERY 1 DAY)
     Route: 048
     Dates: start: 20210305
  9. DEKRISTOL [Concomitant]
     Active Substance: CHOLECALCIFEROL
     Indication: VITAMIN D DEFICIENCY
     Dosage: 20000 INTERNATIONAL UNIT (EVERY 14 DAYS)
     Route: 065
  10. MIMPARA [Concomitant]
     Active Substance: CINACALCET HYDROCHLORIDE
     Indication: HYPERTHYROIDISM
  11. TAMSULOSIN ARISTO 0,4 MG RETARD TABLETTEN [Concomitant]
     Indication: BENIGN PROSTATIC HYPERPLASIA
     Dosage: 0.4 MILLIGRAM (EVERY 1 DAY)
     Route: 065
  12. ESOMEPRAZOL [Concomitant]
     Active Substance: ESOMEPRAZOLE
     Indication: DYSPEPSIA
     Dosage: 40 MILLIGRAM (EVERY 1 DAY)
     Route: 065
  13. DUTASTERID AXIROMED 0,5 MG WEICHKAPSELN [Concomitant]
     Indication: BENIGN PROSTATIC HYPERPLASIA
     Dosage: 0.5 MILLIGRAM (EVERY 1 DAY)
     Route: 065
  14. LEFAX [Concomitant]
     Active Substance: DIMETHICONE
     Indication: ABDOMINAL DISTENSION
     Dosage: 250 MILLIGRAM (EVERY 6 HOURS)
     Route: 065
  15. CALCITRIOL. [Concomitant]
     Active Substance: CALCITRIOL
     Indication: VITAMIN D DEFICIENCY
     Dosage: 0.5 MICROGRAM (EVERY 1 DAY)
     Route: 065
  16. PREGABALIN. [Suspect]
     Active Substance: PREGABALIN
     Indication: INSOMNIA
  17. DREISAVIT N [Concomitant]
     Indication: HYPOVITAMINOSIS
     Dosage: 1 DOSAGE FORM (EVERY 1 DAY)
     Route: 065
  18. NEUREXAN [Concomitant]
     Active Substance: HOMEOPATHICS
     Indication: SLEEP DISORDER
  19. ASPIRIN. [Concomitant]
     Active Substance: ASPIRIN
     Indication: ANTICOAGULANT THERAPY
     Dosage: 100 MILLIGRAM (EVERY 1 DAY)
     Route: 065
  20. EZETROL [Concomitant]
     Active Substance: EZETIMIBE
     Indication: BLOOD CHOLESTEROL INCREASED
     Dosage: 10 MILLIGRAM (EVERY 1 DAY)
     Route: 065
  21. L?THYROXIN [Concomitant]
     Active Substance: LEVOTHYROXINE SODIUM
     Indication: THYROID DISORDER
     Dosage: 25 MICROGRAM
     Route: 065
  22. MAGNESIUM [Concomitant]
     Active Substance: MAGNESIUM
     Indication: MUSCLE SPASMS
     Dosage: 500 MILLIGRAM (EVERY 1 DAY)
     Route: 065
  23. MIMPARA [Concomitant]
     Active Substance: CINACALCET HYDROCHLORIDE
     Indication: ADRENAL DISORDER
     Dosage: 60 MILLIGRAM (EVERY 1 DAY)
     Route: 065
  24. ZINKOROTAT [Concomitant]
     Active Substance: ZINC OROTATE
     Indication: ZINC DEFICIENCY
     Dosage: 40 MILLIGRAM (EVERY 1 DAY)
     Route: 065

REACTIONS (2)
  - Gait disturbance [Recovered/Resolved]
  - Balance disorder [Recovered/Resolved]

NARRATIVE: CASE EVENT DATE: 20210306
